FAERS Safety Report 19681543 (Version 2)
Quarter: 2021Q3

REPORT INFORMATION
  Report Type: Other
  Country: IT (occurrence: IT)
  Receive Date: 20210810
  Receipt Date: 20210920
  Transmission Date: 20211014
  Serious: No
  Sender: FDA-Public Use
  Company Number: IT-ROCHE-2776552

PATIENT
  Age: 38 Year
  Sex: Male
  Weight: 35 kg

DRUGS (6)
  1. RISDIPLAM. [Suspect]
     Active Substance: RISDIPLAM
     Dosage: 5 MG IN 6.6 ML BY MOUTH
     Route: 065
     Dates: start: 20210115
  2. RISDIPLAM. [Suspect]
     Active Substance: RISDIPLAM
     Dosage: 0.75 MG/ML
     Route: 048
     Dates: start: 20210116
  3. BISOPROLOL [Concomitant]
     Active Substance: BISOPROLOL
     Indication: SINUS TACHYCARDIA
  4. RISDIPLAM. [Suspect]
     Active Substance: RISDIPLAM
     Route: 065
     Dates: start: 20210127
  5. RISDIPLAM. [Suspect]
     Active Substance: RISDIPLAM
     Indication: SPINAL MUSCULAR ATROPHY
     Dosage: 6.6 ML (5 MG) BY MOUTH/DAY
     Route: 048
     Dates: start: 20210114
  6. RISDIPLAM. [Suspect]
     Active Substance: RISDIPLAM
     Dosage: 5 MG IN 6.6 ML BY MOUTH/DAY
     Route: 048

REACTIONS (3)
  - Oligoasthenoteratozoospermia [Not Recovered/Not Resolved]
  - Oligospermia [Not Recovered/Not Resolved]
  - Benign prostatic hyperplasia [Unknown]

NARRATIVE: CASE EVENT DATE: 20210127
